FAERS Safety Report 9627180 (Version 5)
Quarter: 2013Q4

REPORT INFORMATION
  Report Type: Report from Study
  Country: US (occurrence: US)
  Receive Date: 20131016
  Receipt Date: 20131209
  Transmission Date: 20140711
  Serious: Yes (Hospitalization)
  Sender: FDA-Public Use
  Company Number: US-ROCHE-1288016

PATIENT
  Age: 80 Year
  Sex: Male
  Weight: 87.9 kg

DRUGS (22)
  1. TOCILIZUMAB [Suspect]
     Indication: RHEUMATOID ARTHRITIS
     Dosage: DATE OF MOST RECENT DOSE PRIOR TO SAE: 09/SEP/2013, DOSE: 8 MG/KG
     Route: 042
     Dates: start: 20120716
  2. MICARDIS [Concomitant]
     Indication: HYPERTENSION
     Route: 048
     Dates: start: 2000
  3. METFORMIN [Concomitant]
     Indication: TYPE 2 DIABETES MELLITUS
     Route: 048
  4. AMLODIPINE BESYLATE [Concomitant]
     Indication: HYPERTENSION
     Route: 048
     Dates: start: 2002
  5. METHOTREXATE [Concomitant]
     Indication: RHEUMATOID ARTHRITIS
     Route: 048
     Dates: start: 20120419, end: 20121206
  6. METHOTREXATE [Concomitant]
     Route: 048
     Dates: start: 201204, end: 20120418
  7. METHOTREXATE [Concomitant]
     Route: 048
     Dates: start: 20121207, end: 20130121
  8. METHOTREXATE [Concomitant]
     Route: 048
     Dates: start: 20130225
  9. FOLIC ACID [Concomitant]
     Route: 048
     Dates: start: 20120419
  10. FERROUS GLUCONATE [Concomitant]
     Indication: ANAEMIA
     Route: 048
     Dates: start: 201205, end: 20130125
  11. FERROUS GLUCONATE [Concomitant]
     Route: 048
     Dates: start: 20130202
  12. NEXIUM [Concomitant]
     Indication: GASTROOESOPHAGEAL REFLUX DISEASE
     Route: 048
     Dates: start: 20121123
  13. LEVAQUIN [Concomitant]
     Indication: PNEUMONIA
     Route: 048
     Dates: start: 20130131, end: 20130217
  14. LEVAQUIN [Concomitant]
     Route: 042
     Dates: start: 20130126, end: 20130130
  15. FERGON (UNITED STATES) [Concomitant]
     Indication: ANAEMIA
     Route: 048
     Dates: start: 20130126, end: 20130201
  16. MUCINEX [Concomitant]
     Indication: PNEUMONIA
     Route: 048
     Dates: start: 20130126, end: 20130201
  17. LOVENOX [Concomitant]
     Route: 058
     Dates: start: 20130127, end: 20130201
  18. INFLUENZA VACCINE [Concomitant]
     Route: 030
     Dates: start: 20130122, end: 20130122
  19. INFLUENZA VACCINE [Concomitant]
     Route: 030
     Dates: start: 20131003, end: 20131003
  20. LYRICA [Concomitant]
     Indication: PAIN IN EXTREMITY
     Route: 048
     Dates: start: 20130715, end: 20131003
  21. LYRICA [Concomitant]
     Route: 048
     Dates: start: 20131003
  22. CARVEDILOL [Concomitant]
     Indication: HYPERTENSION
     Route: 048
     Dates: start: 2000

REACTIONS (1)
  - Pancreatitis [Recovered/Resolved]
